FAERS Safety Report 16952218 (Version 1)
Quarter: 2019Q4

REPORT INFORMATION
  Report Type: Spontaneous
  Country: US (occurrence: US)
  Receive Date: 20191023
  Receipt Date: 20191023
  Transmission Date: 20200122
  Serious: Yes (Other)
  Sender: FDA-Public Use
  Company Number: US-GLAXOSMITHKLINE-US2019187926

PATIENT
  Sex: Male

DRUGS (1)
  1. ADVAIR DISKUS [Suspect]
     Active Substance: FLUTICASONE PROPIONATE\SALMETEROL XINAFOATE
     Indication: PRODUCT USED FOR UNKNOWN INDICATION
     Dosage: UNK UNK, BID
     Route: 065
     Dates: start: 2000

REACTIONS (11)
  - CSF protein abnormal [Unknown]
  - Lumbar puncture [Unknown]
  - Respiratory disorder [Unknown]
  - Cerebrovascular accident [Unknown]
  - Acute kidney injury [Recovered/Resolved]
  - Electrocardiogram abnormal [Unknown]
  - Expired product administered [Unknown]
  - Hypoxia [Unknown]
  - Speech disorder [Recovered/Resolved]
  - Dysgraphia [Unknown]
  - Hypovolaemia [Unknown]

NARRATIVE: CASE EVENT DATE: 2010
